FAERS Safety Report 8956977 (Version 3)
Quarter: 2013Q4

REPORT INFORMATION
  Report Type: Spontaneous
  Country: US (occurrence: PE)
  Receive Date: 20121211
  Receipt Date: 20131230
  Transmission Date: 20140711
  Serious: Yes (Hospitalization)
  Sender: FDA-Public Use
  Company Number: US-PFIZER INC-2012307775

PATIENT
  Age: 67 Year
  Sex: Male

DRUGS (3)
  1. SUTENT [Suspect]
     Indication: CLEAR CELL RENAL CELL CARCINOMA
     Dosage: UNK, 4 WEEKS AND 2 WEEKS OFF REGIMEN
  2. SUTENT [Suspect]
     Dosage: 37.5 MG, E/24 H
     Route: 048
  3. SUTENT [Suspect]
     Dosage: 37.5 MG, E/24 H
     Route: 048
     Dates: end: 201308

REACTIONS (19)
  - Intestinal obstruction [Recovering/Resolving]
  - Pancytopenia [Recovered/Resolved]
  - Liver abscess [Recovering/Resolving]
  - Lung abscess [Recovering/Resolving]
  - Sepsis [Recovering/Resolving]
  - Oropharyngeal pain [Recovering/Resolving]
  - Jaundice [Unknown]
  - Pulmonary oedema [Unknown]
  - Constipation [Recovering/Resolving]
  - Infection [Recovered/Resolved]
  - Wound [Recovering/Resolving]
  - Hyperaesthesia [Recovering/Resolving]
  - Flatulence [Recovering/Resolving]
  - Fluid overload [Recovering/Resolving]
  - Hyponatraemia [Recovering/Resolving]
  - Pyrexia [Recovering/Resolving]
  - Abdominal pain [Unknown]
  - Constipation [Unknown]
  - Diverticulum intestinal [Unknown]
